FAERS Safety Report 7211620-3 (Version None)
Quarter: 2010Q4

REPORT INFORMATION
  Report Type: 
  Country: None (occurrence: None)
  Receive Date: 20101227
  Receipt Date: 20101214
  Transmission Date: 20110411
  Serious: Yes (Other)
  Sender: FDA-Public Use
  Company Number: 012273

PATIENT
  Age: 89 Year
  Sex: Male

DRUGS (2)
  1. SAMSCA [Suspect]
     Indication: INAPPROPRIATE ANTIDIURETIC HORMONE SECRETION
  2. DEMECLOCYCLINE HCL [Suspect]
     Dates: end: 20101201

REACTIONS (1)
  - RENAL FAILURE [None]
